FAERS Safety Report 13261354 (Version 1)
Quarter: 2017Q1

REPORT INFORMATION
  Report Type: Spontaneous
  Country: US (occurrence: US)
  Receive Date: 20170222
  Receipt Date: 20170222
  Transmission Date: 20170428
  Serious: No
  Sender: FDA-Public Use
  Company Number: US-PFIZER INC-2017070667

PATIENT
  Age: 39 Year
  Sex: Female

DRUGS (2)
  1. LETROZOLE. [Concomitant]
     Active Substance: LETROZOLE
     Dosage: UNK
  2. IBRANCE [Suspect]
     Active Substance: PALBOCICLIB
     Indication: NEOPLASM
     Dosage: 125 MG, CYCLIC (TAKE 1 CAPSULE/WITH FOOD AT APPROXIMATELY THE SAME TIME EACH DAY)
     Route: 048

REACTIONS (1)
  - Gastroenteritis viral [Unknown]
